FAERS Safety Report 15489380 (Version 1)
Quarter: 2018Q4

REPORT INFORMATION
  Report Type: Spontaneous
  Country: US (occurrence: US)
  Receive Date: 20181004
  Receipt Date: 20181004
  Transmission Date: 20190205
  Serious: Yes (Other)
  Sender: FDA-Public Use
  Company Number: None

PATIENT
  Age: 70 Year
  Sex: Female
  Weight: 74.25 kg

DRUGS (9)
  1. XELJANZ [Concomitant]
     Active Substance: TOFACITINIB CITRATE
  2. MOBIC [Concomitant]
     Active Substance: MELOXICAM
  3. ESTRARING [Concomitant]
  4. TRULANCE [Suspect]
     Active Substance: PLECANATIDE
     Indication: GASTROINTESTINAL MOTILITY DISORDER
     Dosage: ?          QUANTITY:1 TABLET(S);?
     Route: 048
     Dates: start: 20181003, end: 20181004
  5. VITAMIN D3 [Concomitant]
     Active Substance: CHOLECALCIFEROL
  6. LISINOPRIL. [Concomitant]
     Active Substance: LISINOPRIL
  7. TRAMADOL XR [Concomitant]
  8. CALCIUM [Concomitant]
     Active Substance: CALCIUM
  9. PROLIA [Concomitant]
     Active Substance: DENOSUMAB

REACTIONS (2)
  - Product label issue [None]
  - Diarrhoea [None]

NARRATIVE: CASE EVENT DATE: 20181003
